FAERS Safety Report 15209039 (Version 1)
Quarter: 2018Q3

REPORT INFORMATION
  Report Type: Spontaneous
  Country: CH (occurrence: CH)
  Receive Date: 20180727
  Receipt Date: 20180727
  Transmission Date: 20181010
  Serious: Yes (Other)
  Sender: FDA-Public Use
  Company Number: CH-ASTRAZENECA-2018SE93807

PATIENT
  Age: 809 Month
  Sex: Female

DRUGS (6)
  1. IRFEN [Concomitant]
     Active Substance: IBUPROFEN
  2. NEXIUM [Suspect]
     Active Substance: ESOMEPRAZOLE MAGNESIUM
     Dosage: REDUCES TO 10MG
     Route: 048
  3. METFORMIN [Concomitant]
     Active Substance: METFORMIN HYDROCHLORIDE
     Dosage: 1X/MORNING 250 MG (SINCE APPROX. 4 WEEKS)
  4. BELOC ZOK [Concomitant]
     Active Substance: METOPROLOL SUCCINATE
     Dosage: 1X/MORNING 25 MG AND 1X/EVENING 25 MG
  5. DIASPORAL [Concomitant]
     Dosage: IN THE MORNING (1 SACHET)
  6. NEXIUM [Suspect]
     Active Substance: ESOMEPRAZOLE MAGNESIUM
     Route: 048

REACTIONS (4)
  - Seasonal allergy [Unknown]
  - Asthma [Unknown]
  - Type 2 diabetes mellitus [Unknown]
  - Abdominal pain [Unknown]

NARRATIVE: CASE EVENT DATE: 201802
